FAERS Safety Report 5352586-0 (Version None)
Quarter: 2007Q2

REPORT INFORMATION
  Report Type: 
  Country: None (occurrence: None)
  Receive Date: 20070611
  Receipt Date: 20070530
  Transmission Date: 20071010
  Serious: Yes (Life-Threatening, Hospitalization, Other)
  Sender: FDA-Public Use
  Company Number: US-KINGPHARMUSA00001-K200700664

PATIENT

DRUGS (3)
  1. ALTACE [Suspect]
     Indication: PROPHYLAXIS
     Route: 048
     Dates: start: 20020415
  2. ALTACE [Suspect]
  3. POTASSIUM ACETATE [Suspect]

REACTIONS (3)
  - CARDIAC ARREST [None]
  - HYPERKALAEMIA [None]
  - VENTRICULAR TACHYCARDIA [None]
